FAERS Safety Report 7951940-8 (Version None)
Quarter: 2011Q4

REPORT INFORMATION
  Report Type: 
  Country: None (occurrence: None)
  Receive Date: 20111201
  Receipt Date: 20111125
  Transmission Date: 20120403
  Serious: Yes (Other)
  Sender: FDA-Public Use
  Company Number: JP-SHIRE-SPV1-2010-01035

PATIENT
  Sex: Female

DRUGS (16)
  1. PRECIPITATED CALCIUM CARBONATE [Concomitant]
     Indication: HYPERPHOSPHATAEMIA
     Dosage: 3 G, UNKNOWN
     Route: 048
     Dates: start: 20020101, end: 20100406
  2. PRECIPITATED CALCIUM CARBONATE [Concomitant]
     Dosage: 1.5 G, UNKNOWN
     Route: 048
     Dates: start: 20100407, end: 20100519
  3. KALIMATE [Concomitant]
     Indication: PRODUCT USED FOR UNKNOWN INDICATION
     Dosage: 5 G, UNKNOWN
     Route: 048
     Dates: start: 20090909
  4. NORVASC [Concomitant]
     Indication: PRODUCT USED FOR UNKNOWN INDICATION
     Dosage: 5 MG, UNKNOWN
     Route: 048
  5. RENAGEL                            /01459902/ [Concomitant]
     Indication: HYPERPHOSPHATAEMIA
     Dosage: 2250 MG, UNKNOWN
     Route: 048
  6. LASIX [Concomitant]
     Indication: PRODUCT USED FOR UNKNOWN INDICATION
     Dosage: 80 MG, UNKNOWN
     Route: 048
  7. LANTHANUM CARBONATE [Suspect]
     Indication: HYPERPHOSPHATAEMIA
     Dosage: 750 MG, OTHER (IMMEDIATELY AFTER MEALS)
     Route: 048
     Dates: start: 20090909, end: 20100209
  8. LANTHANUM CARBONATE [Suspect]
     Dosage: 1500 MG, OTHER (IMMEDIATELY AFTER MEALS)
     Route: 048
     Dates: start: 20100210
  9. PRECIPITATED CALCIUM CARBONATE [Concomitant]
     Dosage: 1.5 G, UNKNOWN
     Route: 048
     Dates: start: 20101103, end: 20110419
  10. LOSARTAN POTASSIUM [Concomitant]
     Indication: PRODUCT USED FOR UNKNOWN INDICATION
     Dosage: 25 MG, UNKNOWN
     Route: 048
  11. TOKISYAKUYAKUSAN [Concomitant]
     Indication: PRODUCT USED FOR UNKNOWN INDICATION
     Dosage: 7.5 G, UNKNOWN
     Route: 048
  12. BASEN [Concomitant]
     Indication: PRODUCT USED FOR UNKNOWN INDICATION
     Dosage: .3 MG, UNK
     Route: 048
  13. OPALMON [Concomitant]
     Indication: PRODUCT USED FOR UNKNOWN INDICATION
     Dosage: 20 UG, UNK
     Route: 048
  14. EPADEL                             /01682401/ [Concomitant]
     Indication: PRODUCT USED FOR UNKNOWN INDICATION
     Dosage: 1200 MG, UNKNOWN
     Route: 048
  15. PRECIPITATED CALCIUM CARBONATE [Concomitant]
     Dosage: 2.5 G, UNKNOWN
     Route: 048
     Dates: start: 20110420
  16. CARVEDILOL [Concomitant]
     Indication: PRODUCT USED FOR UNKNOWN INDICATION
     Dosage: 2.5 MG, UNKNOWN
     Route: 048

REACTIONS (7)
  - NAUSEA [None]
  - GASTRITIS ATROPHIC [None]
  - HYPERCALCAEMIA [None]
  - VOMITING [None]
  - GASTRIC ULCER [None]
  - HYPERPARATHYROIDISM SECONDARY [None]
  - CONDITION AGGRAVATED [None]
